FAERS Safety Report 15154678 (Version 2)
Quarter: 2018Q3

REPORT INFORMATION
  Report Type: Spontaneous
  Country: US (occurrence: US)
  Receive Date: 20180717
  Receipt Date: 20180821
  Transmission Date: 20181010
  Serious: Yes (Hospitalization, Other)
  Sender: FDA-Public Use
  Company Number: US-009507513-1807USA005278

PATIENT
  Age: 60 Year
  Sex: Female

DRUGS (1)
  1. KEYTRUDA [Suspect]
     Active Substance: PEMBROLIZUMAB
     Indication: NON-SMALL CELL LUNG CANCER
     Dosage: 200 MG, Q3W (CYCLE 3)
     Route: 042
     Dates: start: 20180705

REACTIONS (3)
  - Escherichia urinary tract infection [Unknown]
  - Septic shock [Unknown]
  - Vomiting [Unknown]

NARRATIVE: CASE EVENT DATE: 20180706
